FAERS Safety Report 5179724-7 (Version None)
Quarter: 2006Q4

REPORT INFORMATION
  Report Type: 
  Country: None (occurrence: None)
  Receive Date: 20061212
  Receipt Date: 20061205
  Transmission Date: 20070319
  Serious: Yes (Congenital Anomaly, Other)
  Sender: FDA-Public Use
  Company Number: 2006080057

PATIENT
  Sex: Male
  Weight: 3.66 kg

DRUGS (1)
  1. CETIRIZINE                              (CETIRIZINE) [Suspect]
     Indication: HYPERSENSITIVITY
     Dosage: (10 MG, AS NECESSARY), ORAL
     Route: 048
     Dates: start: 20060501, end: 20061101

REACTIONS (4)
  - CLEFT LIP [None]
  - CLEFT PALATE [None]
  - DRUG EXPOSURE DURING PREGNANCY [None]
  - FOETAL MOVEMENTS DECREASED [None]
